FAERS Safety Report 7408210-6 (Version None)
Quarter: 2011Q2

REPORT INFORMATION
  Report Type: 
  Country: None (occurrence: None)
  Receive Date: 20110412
  Receipt Date: 20101027
  Transmission Date: 20111010
  Serious: Yes (Hospitalization)
  Sender: FDA-Public Use
  Company Number: US-BAYER-201020626NA

PATIENT
  Age: 22 Year
  Sex: Female

DRUGS (4)
  1. YAZ [Suspect]
     Indication: PREMENSTRUAL SYNDROME
  2. YAZ [Suspect]
  3. YASMIN [Suspect]
     Indication: DYSMENORRHOEA
     Route: 048
     Dates: start: 20080301, end: 20080601
  4. CILEST [Suspect]
     Route: 048
     Dates: start: 20080301, end: 20080601

REACTIONS (3)
  - ABDOMINAL DISCOMFORT [None]
  - FOCAL NODULAR HYPERPLASIA [None]
  - HEPATIC NEOPLASM [None]
